FAERS Safety Report 7536545-5 (Version None)
Quarter: 2011Q2

REPORT INFORMATION
  Report Type: 
  Country: None (occurrence: None)
  Receive Date: 20110602
  Receipt Date: 20110526
  Transmission Date: 20111010
  Serious: Yes (Hospitalization)
  Sender: FDA-Public Use
  Company Number: 2011SP024236

PATIENT
  Age: 43 Year
  Sex: Male

DRUGS (1)
  1. DESLORATADINE [Suspect]
     Indication: DERMATITIS ATOPIC
     Dosage: 1 DF;QD
     Dates: start: 20110101

REACTIONS (5)
  - ANKYLOSING SPONDYLITIS [None]
  - DERMATITIS ATOPIC [None]
  - HYPERSENSITIVITY [None]
  - SKIN TEST POSITIVE [None]
  - CONDITION AGGRAVATED [None]
